FAERS Safety Report 9524029 (Version 1)
Quarter: 2013Q3

REPORT INFORMATION
  Report Type: Spontaneous
  Country: DE (occurrence: None)
  Receive Date: 20130912
  Receipt Date: 20130912
  Transmission Date: 20140515
  Serious: Yes (Other)
  Sender: FDA-Public Use
  Company Number: FK201304114

PATIENT
  Sex: 0

DRUGS (1)
  1. CEPHAZOLIN FRESENIUS (NOT SPECIFIED) (CEFAZOLIN SODIUM) (CEFAZOLIN SODIUM) [Suspect]
     Indication: PRODUCT USED FOR UNKNOWN INDICATION

REACTIONS (2)
  - Anaphylactic reaction [None]
  - Bronchospasm [None]
